FAERS Safety Report 23229127 (Version 1)
Quarter: 2023Q4

REPORT INFORMATION
  Report Type: Spontaneous
  Country: FR (occurrence: FR)
  Receive Date: 20231127
  Receipt Date: 20231127
  Transmission Date: 20240110
  Serious: Yes (Life-Threatening)
  Sender: FDA-Public Use
  Company Number: None

PATIENT
  Age: 59 Year
  Sex: Male
  Weight: 88 kg

DRUGS (8)
  1. RISPERIDONE [Suspect]
     Active Substance: RISPERIDONE
     Indication: Schizoaffective disorder
     Route: 048
     Dates: end: 20231012
  2. HYDROCHLOROTHIAZIDE [Suspect]
     Active Substance: HYDROCHLOROTHIAZIDE
     Indication: Hypertension
     Route: 048
     Dates: end: 20231012
  3. TRIMEPRAZINE [Suspect]
     Active Substance: TRIMEPRAZINE
     Indication: Sleep disorder
     Route: 048
     Dates: end: 20231012
  4. TRANXENE [Suspect]
     Active Substance: CLORAZEPATE DIPOTASSIUM
     Indication: Schizoaffective disorder
     Route: 051
     Dates: start: 20231009, end: 20231011
  5. OXAZEPAM [Suspect]
     Active Substance: OXAZEPAM
     Indication: Schizoaffective disorder
     Dosage: 25 MG/J EN SYSTEMATIQUE  ET 25MGX3/JOUR SI BESOIN
     Route: 048
     Dates: end: 20231012
  6. LOPRAZOLAM [Suspect]
     Active Substance: LOPRAZOLAM
     Indication: Schizoaffective disorder
     Route: 048
     Dates: end: 20231012
  7. ZOPICLONE [Suspect]
     Active Substance: ZOPICLONE
     Indication: Sleep disorder
     Route: 048
     Dates: end: 20231012
  8. METFORMIN [Suspect]
     Active Substance: METFORMIN HYDROCHLORIDE
     Indication: Type 2 diabetes mellitus
     Route: 048
     Dates: end: 20231012

REACTIONS (5)
  - Vomiting [Recovered/Resolved]
  - Acute kidney injury [Recovering/Resolving]
  - Lactic acidosis [Recovered/Resolved]
  - Coma [Recovered/Resolved]
  - Hypotension [Recovered/Resolved]

NARRATIVE: CASE EVENT DATE: 20231011
